FAERS Safety Report 8054106-9 (Version None)
Quarter: 2012Q1

REPORT INFORMATION
  Report Type: 
  Country: None (occurrence: None)
  Receive Date: 20120118
  Receipt Date: 20120111
  Transmission Date: 20120608
  Serious: Yes (Hospitalization)
  Sender: FDA-Public Use
  Company Number: DE-B.I. PHARMACEUTICALS,INC./RIDGEFIELD-2012-DE-00093DE

PATIENT
  Sex: Female
  Weight: 56 kg

DRUGS (5)
  1. AMIODARONE HCL [Concomitant]
     Indication: ATRIAL FIBRILLATION
     Dosage: 2 ANZ
  2. PRADAXA [Suspect]
     Indication: ATRIAL FIBRILLATION
     Dosage: 220 MG
     Dates: end: 20120105
  3. METOPROLOL [Concomitant]
     Dosage: 95 NR
  4. SPIRONOLACTONE [Concomitant]
     Dosage: 50 NR
  5. TORSEMIDE [Concomitant]
     Dosage: 5 NR

REACTIONS (4)
  - FATIGUE [None]
  - HAEMATOMA [None]
  - GENERAL PHYSICAL HEALTH DETERIORATION [None]
  - TACHYCARDIA [None]
